FAERS Safety Report 11745515 (Version 2)
Quarter: 2016Q3

REPORT INFORMATION
  Report Type: Report from Study
  Country: US (occurrence: US)
  Receive Date: 20151117
  Receipt Date: 20160825
  Transmission Date: 20161109
  Serious: Yes (Death, Hospitalization)
  Sender: FDA-Public Use
  Company Number: US-ROCHE-ITM201502IM009497

PATIENT
  Age: 78 Year
  Sex: Male

DRUGS (14)
  1. ESBRIET [Suspect]
     Active Substance: PIRFENIDONE
     Route: 048
     Dates: start: 20150122
  2. FUROSEMIDE. [Concomitant]
     Active Substance: FUROSEMIDE
  3. ATENOLOL. [Concomitant]
     Active Substance: ATENOLOL
     Route: 048
  4. LOPERAMIDE HYDROCHLORIDE. [Concomitant]
     Active Substance: LOPERAMIDE HYDROCHLORIDE
  5. VITAMIN C [Concomitant]
     Active Substance: ASCORBIC ACID
  6. IBUPROFEN. [Concomitant]
     Active Substance: IBUPROFEN
  7. LINSEED [Concomitant]
  8. ADVIL [Concomitant]
     Active Substance: IBUPROFEN
     Dosage: 200-25MG
     Route: 065
  9. VITAMIN E [Concomitant]
     Active Substance: .ALPHA.-TOCOPHEROL
  10. FLAX OIL [Concomitant]
     Route: 048
  11. LASIX [Concomitant]
     Active Substance: FUROSEMIDE
  12. IMODIUM [Concomitant]
     Active Substance: LOPERAMIDE HYDROCHLORIDE
  13. ESBRIET [Suspect]
     Active Substance: PIRFENIDONE
     Indication: IDIOPATHIC PULMONARY FIBROSIS
     Route: 048
     Dates: start: 20150121, end: 20150123
  14. VITAMIN A [Concomitant]
     Active Substance: VITAMIN A

REACTIONS (3)
  - Post procedural pneumonia [Unknown]
  - Small intestinal obstruction [Fatal]
  - General physical health deterioration [Unknown]

NARRATIVE: CASE EVENT DATE: 20150122
